FAERS Safety Report 5019513-7 (Version None)
Quarter: 2006Q2

REPORT INFORMATION
  Report Type: 
  Country: None (occurrence: None)
  Receive Date: 20060605
  Receipt Date: 20060605
  Transmission Date: 20061013
  Serious: Yes (Other)
  Sender: FDA-Public Use
  Company Number: None

PATIENT
  Sex: Female

DRUGS (1)
  1. AFRIN [Suspect]
     Indication: MULTIPLE ALLERGIES
     Dosage: NAS AER SPRAY
     Route: 045

REACTIONS (3)
  - ANOSMIA [None]
  - DRUG DEPENDENCE [None]
  - REBOUND EFFECT [None]
